FAERS Safety Report 19677474 (Version 3)
Quarter: 2022Q1

REPORT INFORMATION
  Report Type: Other
  Country: CA (occurrence: CA)
  Receive Date: 20210810
  Receipt Date: 20220316
  Transmission Date: 20220423
  Serious: Yes (Other)
  Sender: FDA-Public Use
  Company Number: CA-002147023-PHHY2016CA045060

PATIENT
  Age: 48 Year
  Sex: Female

DRUGS (15)
  1. XOLAIR [Suspect]
     Active Substance: OMALIZUMAB
     Indication: Chronic spontaneous urticaria
     Dosage: 300 MG, EVERY 4 WEEKS
     Route: 058
     Dates: start: 20160303
  2. XOLAIR [Suspect]
     Active Substance: OMALIZUMAB
     Dosage: UNK
     Route: 058
     Dates: start: 20160403
  3. XOLAIR [Suspect]
     Active Substance: OMALIZUMAB
     Route: 058
     Dates: start: 20160601
  4. XOLAIR [Suspect]
     Active Substance: OMALIZUMAB
     Route: 058
     Dates: start: 20160825
  5. XOLAIR [Suspect]
     Active Substance: OMALIZUMAB
     Route: 058
     Dates: start: 20160922
  6. XOLAIR [Suspect]
     Active Substance: OMALIZUMAB
     Route: 058
     Dates: start: 20161027
  7. XOLAIR [Suspect]
     Active Substance: OMALIZUMAB
     Route: 058
     Dates: start: 20161124
  8. XOLAIR [Suspect]
     Active Substance: OMALIZUMAB
     Route: 058
     Dates: start: 20180301
  9. XOLAIR [Suspect]
     Active Substance: OMALIZUMAB
     Route: 058
     Dates: start: 20180816
  10. XOLAIR [Suspect]
     Active Substance: OMALIZUMAB
     Route: 058
     Dates: start: 20191108
  11. XOLAIR [Suspect]
     Active Substance: OMALIZUMAB
     Route: 058
  12. CETIRIZINE HYDROCHLORIDE [Concomitant]
     Active Substance: CETIRIZINE HYDROCHLORIDE
     Dates: start: 20150510
  13. SINGULAIR [Concomitant]
     Active Substance: MONTELUKAST SODIUM
     Route: 065
     Dates: start: 20150510
  14. PREDNISONE [Concomitant]
     Active Substance: PREDNISONE
     Route: 065
     Dates: start: 20150510
  15. ATARAX [Concomitant]
     Active Substance: HYDROXYZINE HYDROCHLORIDE
     Route: 065
     Dates: start: 20150510

REACTIONS (18)
  - Urinary tract infection [Recovering/Resolving]
  - Chills [Unknown]
  - Influenza [Recovering/Resolving]
  - Back pain [Not Recovered/Not Resolved]
  - Weight decreased [Unknown]
  - Discomfort [Unknown]
  - Drug hypersensitivity [Unknown]
  - Melanocytic naevus [Unknown]
  - Urticaria [Unknown]
  - Malaise [Unknown]
  - Arthralgia [Unknown]
  - Pruritus [Not Recovered/Not Resolved]
  - Myalgia [Unknown]
  - Pain [Unknown]
  - Drug ineffective [Unknown]
  - Lip pain [Unknown]
  - Urticaria [Recovered/Resolved]
  - Middle insomnia [Unknown]

NARRATIVE: CASE EVENT DATE: 20160303
